FAERS Safety Report 9917020 (Version 2)
Quarter: 2014Q3

REPORT INFORMATION
  Report Type: Spontaneous
  Country: CA (occurrence: CA)
  Receive Date: 20140221
  Receipt Date: 20140717
  Transmission Date: 20150326
  Serious: Yes (Death, Other)
  Sender: FDA-Public Use
  Company Number: CA-GLAXOSMITHKLINE-A1061085A

PATIENT
  Age: 53 Year
  Sex: Male
  Weight: 99.7 kg

DRUGS (4)
  1. ZOPICLONE [Concomitant]
     Active Substance: ZOPICLONE
  2. METHOTRIMEPRAZINE [Concomitant]
     Active Substance: LEVOMEPROMAZINE
  3. TAFINLAR [Suspect]
     Active Substance: DABRAFENIB MESYLATE
     Indication: METASTATIC MALIGNANT MELANOMA
     Dosage: 150MG TWICE PER DAY
     Route: 048
     Dates: start: 20131115, end: 20140707
  4. HYDROMORPHONE [Concomitant]
     Active Substance: HYDROMORPHONE

REACTIONS (11)
  - Vomiting [Unknown]
  - Blood pressure decreased [Not Recovered/Not Resolved]
  - Nodule [Unknown]
  - Death [Fatal]
  - Nausea [Unknown]
  - Gastroenteritis viral [Unknown]
  - Vasogenic cerebral oedema [Unknown]
  - Depressed level of consciousness [Not Recovered/Not Resolved]
  - Metastatic malignant melanoma [Fatal]
  - Mydriasis [Not Recovered/Not Resolved]
  - Intracranial pressure increased [Not Recovered/Not Resolved]

NARRATIVE: CASE EVENT DATE: 20140707
